FAERS Safety Report 13698158 (Version 2)
Quarter: 2017Q3

REPORT INFORMATION
  Report Type: Other
  Country: CA (occurrence: CA)
  Receive Date: 20170628
  Receipt Date: 20170919
  Transmission Date: 20171127
  Serious: Yes (Death)
  Sender: FDA-Public Use
  Company Number: CA-TAKEDA-2017TUS013950

PATIENT
  Age: 42 Year
  Sex: Male

DRUGS (1)
  1. TRINTELLIX [Suspect]
     Active Substance: VORTIOXETINE HYDROBROMIDE
     Indication: DEPRESSION
     Dosage: UNK, QD
     Route: 048
     Dates: start: 20161015, end: 20161019

REACTIONS (2)
  - Completed suicide [Fatal]
  - Vomiting [Fatal]

NARRATIVE: CASE EVENT DATE: 2016
